FAERS Safety Report 4763090-2 (Version None)
Quarter: 2005Q3

REPORT INFORMATION
  Report Type: 
  Country: None (occurrence: None)
  Receive Date: 20050826
  Receipt Date: 20041202
  Transmission Date: 20060218
  Serious: Yes (Death)
  Sender: FDA-Public Use
  Company Number: USA-2004-0017896

PATIENT
  Age: 35 Year
  Sex: Female

DRUGS (2)
  1. OXYCONTIN [Suspect]
  2. COCAINE (COCAINE) [Suspect]

REACTIONS (3)
  - ACCIDENTAL OVERDOSE [None]
  - MULTIPLE DRUG OVERDOSE [None]
  - POLYSUBSTANCE ABUSE [None]
